FAERS Safety Report 4616713-2 (Version None)
Quarter: 2005Q1

REPORT INFORMATION
  Report Type: 
  Country: None (occurrence: None)
  Receive Date: 20050321
  Receipt Date: 20050307
  Transmission Date: 20050727
  Serious: No
  Sender: FDA-Public Use
  Company Number: 2005SE01050

PATIENT
  Age: 38 Year
  Sex: Female
  Weight: 53 kg

DRUGS (2)
  1. SEROQUEL [Suspect]
     Indication: MAJOR DEPRESSION
     Dosage: 50 MG QD PO
     Route: 048
     Dates: start: 20041001
  2. CITALOPRAM HYDROBROMIDE [Concomitant]

REACTIONS (7)
  - CONFUSIONAL STATE [None]
  - CRYING [None]
  - NIGHTMARE [None]
  - PARASOMNIA [None]
  - SCREAMING [None]
  - SLEEP DISORDER [None]
  - SLEEP TERROR [None]
